FAERS Safety Report 7707589-5 (Version None)
Quarter: 2011Q3

REPORT INFORMATION
  Report Type: 
  Country: None (occurrence: None)
  Receive Date: 20110824
  Receipt Date: 20110812
  Transmission Date: 20111222
  Serious: Yes (Hospitalization, Other)
  Sender: FDA-Public Use
  Company Number: US-BAYER-2011-045379

PATIENT
  Age: 24 Year
  Sex: Female
  Weight: 50 kg

DRUGS (12)
  1. REGLAN [Concomitant]
  2. YAZ [Suspect]
     Indication: CONTRACEPTION
     Dosage: UNK
     Dates: start: 20060101, end: 20090801
  3. YAZ [Suspect]
     Indication: ACNE
  4. ATIVAN [Concomitant]
  5. YAZ [Suspect]
     Indication: PREMENSTRUAL SYNDROME
  6. IBUPROFEN [Concomitant]
  7. WELCHOL [Concomitant]
     Dosage: UNK
     Dates: start: 20100101
  8. ZOFRAN [Concomitant]
  9. AMITRIPTYLINE HCL [Concomitant]
     Dosage: UNK
     Dates: start: 20080101
  10. TYLENOL-500 [Concomitant]
  11. LORAZEPAM [Concomitant]
     Indication: ANXIETY
     Dosage: UNK
     Dates: start: 20080101
  12. ANTIEMETICS AND ANTINAUSEANTS [Concomitant]

REACTIONS (15)
  - CHOLECYSTITIS [None]
  - CYCLIC VOMITING SYNDROME [None]
  - LIPASE INCREASED [None]
  - PROCEDURAL PAIN [None]
  - CHOLELITHIASIS [None]
  - PANCREATITIS [None]
  - VOMITING [None]
  - PRESYNCOPE [None]
  - ABDOMINAL PAIN [None]
  - PYREXIA [None]
  - GALLBLADDER DISORDER [None]
  - CHOLECYSTITIS CHRONIC [None]
  - FLUID INTAKE RESTRICTION [None]
  - DIARRHOEA [None]
  - NAUSEA [None]
